FAERS Safety Report 12924198 (Version 1)
Quarter: 2016Q4

REPORT INFORMATION
  Report Type: Spontaneous
  Country: RS (occurrence: RS)
  Receive Date: 20161109
  Receipt Date: 20161109
  Transmission Date: 20170207
  Serious: Yes (Death, Other)
  Sender: FDA-Public Use
  Company Number: RS-PFIZER INC-2016515682

PATIENT
  Age: 43 Year
  Sex: Female

DRUGS (1)
  1. SUTENT [Suspect]
     Active Substance: SUNITINIB MALATE
     Indication: METASTATIC RENAL CELL CARCINOMA
     Dosage: UNK, CYCLIC (HAD A SINGLE CYCLE OF TREATMENT)

REACTIONS (1)
  - Death [Fatal]
